FAERS Safety Report 9296167 (Version 2)
Quarter: 2013Q2

REPORT INFORMATION
  Report Type: Spontaneous
  Country: US (occurrence: US)
  Receive Date: 20130517
  Receipt Date: 20130613
  Transmission Date: 20140414
  Serious: Yes (Death, Other)
  Sender: FDA-Public Use
  Company Number: US-BRISTOL-MYERS SQUIBB COMPANY-17294653

PATIENT
  Age: 56 Year
  Sex: Female
  Weight: 87.07 kg

DRUGS (10)
  1. ORENCIA FOR INJ [Suspect]
     Indication: RHEUMATOID ARTHRITIS
     Dosage: DATE OF LAST INJECTION:  08JAN2013
     Route: 058
  2. LEVOFLOXACIN [Suspect]
  3. HUMIRA [Suspect]
     Indication: RHEUMATOID ARTHRITIS
     Dosage: 14JUL10-15SEP10?08FEB2013
     Route: 058
     Dates: start: 20100714, end: 20130208
  4. LEVOTHYROXINE [Suspect]
     Indication: HYPOTHYROIDISM
     Dates: end: 20130222
  5. OXYCODONE [Suspect]
  6. METHOTREXATE [Suspect]
     Indication: RHEUMATOID ARTHRITIS
  7. SIMPONI [Concomitant]
     Dates: start: 20110706, end: 20110721
  8. FOLIC ACID [Concomitant]
  9. PREDNISONE [Concomitant]
     Dates: start: 201209, end: 20130208
  10. ENBREL [Concomitant]
     Dates: start: 20100915, end: 20120907

REACTIONS (3)
  - Pulmonary embolism [Fatal]
  - Pneumonia [Recovering/Resolving]
  - Local swelling [Not Recovered/Not Resolved]
